FAERS Safety Report 10023076 (Version 1)
Quarter: 2014Q1

REPORT INFORMATION
  Report Type: Spontaneous
  Country: US (occurrence: US)
  Receive Date: 20140319
  Receipt Date: 20140319
  Transmission Date: 20141002
  Serious: No
  Sender: FDA-Public Use
  Company Number: US-009507513-1403USA006949

PATIENT
  Age: 22 Year
  Sex: Female

DRUGS (1)
  1. NUVARING [Suspect]
     Indication: CONTRACEPTION
     Dosage: 3 WEEKS IN, NO BREAK, CHANGE RING
     Route: 067
     Dates: start: 20140206

REACTIONS (2)
  - Haemorrhage [Unknown]
  - Inappropriate schedule of drug administration [Unknown]
